FAERS Safety Report 7918273-7 (Version None)
Quarter: 2011Q4

REPORT INFORMATION
  Report Type: 
  Country: None (occurrence: None)
  Receive Date: 20111116
  Receipt Date: 20111031
  Transmission Date: 20120403
  Serious: Yes (Hospitalization)
  Sender: FDA-Public Use
  Company Number: JP-GLAXOSMITHKLINE-B0759983A

PATIENT
  Age: 54 Year
  Sex: Female

DRUGS (3)
  1. CEFAZOLIN [Concomitant]
  2. ARIXTRA [Suspect]
     Indication: THROMBOSIS PROPHYLAXIS
     Dosage: 2.5MG PER DAY
     Route: 058
     Dates: start: 20111009, end: 20111015
  3. LEVOFLOXACIN [Concomitant]
     Route: 048

REACTIONS (4)
  - PYREXIA [None]
  - INFUSION SITE MASS [None]
  - BREAST CANCER [None]
  - INFUSION SITE INFLAMMATION [None]
